FAERS Safety Report 6193321-6 (Version None)
Quarter: 2009Q2

REPORT INFORMATION
  Report Type: 
  Country: None (occurrence: None)
  Receive Date: 20090513
  Receipt Date: 20090513
  Transmission Date: 20091009
  Serious: Yes (Hospitalization, Other)
  Sender: FDA-Public Use
  Company Number: None

PATIENT
  Age: 57 Year
  Sex: Female
  Weight: 95.2554 kg

DRUGS (3)
  1. ZYVOX [Suspect]
     Indication: CELLULITIS
     Dosage: 1 DOSE PO
     Route: 048
     Dates: start: 20090424
  2. ZYVOX [Suspect]
     Indication: CULTURE
     Dosage: 1 DOSE PO
     Route: 048
     Dates: start: 20090424
  3. ZYVOX [Suspect]
     Indication: STAPHYLOCOCCAL INFECTION
     Dosage: 1 DOSE PO
     Route: 048
     Dates: start: 20090424

REACTIONS (5)
  - ABDOMINAL PAIN UPPER [None]
  - EAR PAIN [None]
  - NAUSEA [None]
  - PAIN IN EXTREMITY [None]
  - TINNITUS [None]
